FAERS Safety Report 23455795 (Version 3)
Quarter: 2024Q4

REPORT INFORMATION
  Report Type: Report from Study
  Country: US (occurrence: US)
  Receive Date: 20240130
  Receipt Date: 20241004
  Transmission Date: 20250114
  Serious: Yes (Other)
  Sender: ROCHE
  Company Number: US-ROCHE-3495366

PATIENT
  Age: 41 Year
  Sex: Female
  Weight: 79.38 kg

DRUGS (5)
  1. OCREVUS [Suspect]
     Active Substance: OCRELIZUMAB
     Indication: Relapsing multiple sclerosis
     Dosage: 1ST 2 INFUSION 2 WEEKS APART.?DATE OF TREATMENT: 15/FEB/2023,01/MAR/2023.
     Route: 065
  2. PROVIGIL [Concomitant]
     Active Substance: MODAFINIL
  3. SOLU-MEDROL [Concomitant]
     Active Substance: METHYLPREDNISOLONE SODIUM SUCCINATE
  4. TYLENOL [Concomitant]
     Active Substance: ACETAMINOPHEN
  5. BENADRYL [Concomitant]
     Active Substance: DIPHENHYDRAMINE HYDROCHLORIDE

REACTIONS (9)
  - JC polyomavirus test positive [Unknown]
  - Abortion spontaneous [Unknown]
  - Maternal exposure before pregnancy [Unknown]
  - Headache [Unknown]
  - Obesity [Unknown]
  - Spinal osteoarthritis [Unknown]
  - Off label use [Unknown]
  - Menopause [Unknown]
  - Sexual dysfunction [Unknown]
